FAERS Safety Report 12443560 (Version 1)
Quarter: 2016Q2

REPORT INFORMATION
  Report Type: Spontaneous
  Country: US (occurrence: US)
  Receive Date: 20160607
  Receipt Date: 20160607
  Transmission Date: 20160815
  Serious: No
  Sender: FDA-Public Use
  Company Number: US-BAYER-2016-111246

PATIENT
  Age: 98 Year
  Sex: Female
  Weight: 49.88 kg

DRUGS (2)
  1. MIRALAX [Suspect]
     Active Substance: POLYETHYLENE GLYCOL 3350
     Indication: CONSTIPATION
     Dosage: 1 DF, UNK
     Route: 048
     Dates: start: 201512
  2. PHILLIPS MILK OF MAGNESIA [Concomitant]
     Indication: CONSTIPATION

REACTIONS (3)
  - Product use issue [None]
  - Circumstance or information capable of leading to medication error [None]
  - Product use issue [None]

NARRATIVE: CASE EVENT DATE: 201512
